FAERS Safety Report 7144807-9 (Version None)
Quarter: 2010Q4

REPORT INFORMATION
  Report Type: 
  Country: None (occurrence: None)
  Receive Date: 20101112
  Receipt Date: 20100915
  Transmission Date: 20110411
  Serious: Yes (Other)
  Sender: FDA-Public Use
  Company Number: 1000016270

PATIENT
  Sex: Male

DRUGS (1)
  1. SAVELLA [Suspect]

REACTIONS (1)
  - CONVULSION [None]
